FAERS Safety Report 7486771-9 (Version None)
Quarter: 2011Q2

REPORT INFORMATION
  Report Type: 
  Country: None (occurrence: None)
  Receive Date: 20110517
  Receipt Date: 20110513
  Transmission Date: 20111010
  Serious: Yes (Death, Other)
  Sender: FDA-Public Use
  Company Number: GB-PFIZER INC-2011070565

PATIENT
  Age: 34 Year
  Sex: Male

DRUGS (2)
  1. ALCOHOL [Suspect]
     Dosage: UNK
  2. VARENICLINE TARTRATE [Suspect]
     Indication: SMOKING CESSATION THERAPY
     Dosage: UNK
     Route: 048
     Dates: start: 20091005

REACTIONS (11)
  - GASTROINTESTINAL DISORDER [None]
  - ABDOMINAL PAIN UPPER [None]
  - MOOD ALTERED [None]
  - EMOTIONAL DISTRESS [None]
  - MALAISE [None]
  - SOMNOLENCE [None]
  - DEPRESSED MOOD [None]
  - INSOMNIA [None]
  - ROAD TRAFFIC ACCIDENT [None]
  - BLOOD ALCOHOL INCREASED [None]
  - SLEEP DISORDER [None]
